FAERS Safety Report 5731406-6 (Version None)
Quarter: 2008Q2

REPORT INFORMATION
  Report Type: 
  Country: None (occurrence: None)
  Receive Date: 20080508
  Receipt Date: 20080502
  Transmission Date: 20081010
  Serious: Yes (Other)
  Sender: FDA-Public Use
  Company Number: US-ALLERGAN-0805254US

PATIENT
  Sex: Female

DRUGS (1)
  1. RESTASIS [Suspect]
     Indication: DRY EYE
     Dosage: 1 GTT, SINGLE
     Route: 047
     Dates: start: 20080501, end: 20080501

REACTIONS (4)
  - EYELID OEDEMA [None]
  - INJURY CORNEAL [None]
  - LACRIMATION INCREASED [None]
  - OCULAR HYPERAEMIA [None]
